FAERS Safety Report 5327866-5 (Version None)
Quarter: 2007Q2

REPORT INFORMATION
  Report Type: 
  Country: None (occurrence: None)
  Receive Date: 20070517
  Receipt Date: 20070515
  Transmission Date: 20071010
  Serious: Yes (Other)
  Sender: FDA-Public Use
  Company Number: IN-BRISTOL-MYERS SQUIBB COMPANY-13769781

PATIENT

DRUGS (1)
  1. BARACLUDE [Suspect]
     Route: 048

REACTIONS (2)
  - HEPATIC NEOPLASM MALIGNANT [None]
  - THROMBOCYTOPENIA [None]
